FAERS Safety Report 14581247 (Version 1)
Quarter: 2018Q1

REPORT INFORMATION
  Report Type: Spontaneous
  Country: US (occurrence: US)
  Receive Date: 20180227
  Receipt Date: 20180227
  Transmission Date: 20180509
  Serious: No
  Sender: FDA-Public Use
  Company Number: None

PATIENT
  Age: 79 Year
  Sex: Female
  Weight: 65.77 kg

DRUGS (11)
  1. EMPLICITI [Concomitant]
     Active Substance: ELOTUZUMAB
  2. SYNTHROID [Concomitant]
     Active Substance: LEVOTHYROXINE SODIUM
  3. LASSIX [Concomitant]
  4. CITRACAL [Concomitant]
     Active Substance: CALCIUM CITRATE
  5. AMBIEN [Concomitant]
     Active Substance: ZOLPIDEM TARTRATE
  6. CENTRUM SILVER [Concomitant]
     Active Substance: MINERALS\VITAMINS
  7. ACYCLOVIR. [Concomitant]
     Active Substance: ACYCLOVIR
  8. DEXAMETHASONE. [Concomitant]
     Active Substance: DEXAMETHASONE
  9. ASPIRIN. [Concomitant]
     Active Substance: ASPIRIN
  10. KCL [Concomitant]
     Active Substance: POTASSIUM CHLORIDE
  11. REVLIMID [Suspect]
     Active Substance: LENALIDOMIDE

REACTIONS (2)
  - Bone marrow transplant [None]
  - Alopecia [None]

NARRATIVE: CASE EVENT DATE: 20171101
